FAERS Safety Report 10224985 (Version 1)
Quarter: 2014Q2

REPORT INFORMATION
  Report Type: Report from Study
  Country: JP (occurrence: JP)
  Receive Date: 20140609
  Receipt Date: 20140609
  Transmission Date: 20141212
  Serious: Yes (Hospitalization)
  Sender: FDA-Public Use
  Company Number: JP-BRISTOL-MYERS SQUIBB COMPANY-20965992

PATIENT
  Age: 69 Year
  Sex: Male
  Weight: 63 kg

DRUGS (6)
  1. ORENCIA [Suspect]
     Indication: RHEUMATOID ARTHRITIS
     Dosage: INTP ON:OCT12
     Route: 041
     Dates: start: 20120406
  2. SALAZOSULFAPYRIDINE [Concomitant]
     Indication: RHEUMATOID ARTHRITIS
  3. BUCILLAMINE [Concomitant]
     Indication: RHEUMATOID ARTHRITIS
  4. BASEN [Concomitant]
     Dates: start: 20120328
  5. HUMALOG [Concomitant]
     Dates: start: 20120328
  6. LANTUS [Concomitant]
     Dates: start: 20120328

REACTIONS (2)
  - Hip fracture [Recovering/Resolving]
  - Fall [Unknown]
